FAERS Safety Report 9696756 (Version 1)
Quarter: 2013Q4

REPORT INFORMATION
  Report Type: Spontaneous
  Country: US (occurrence: US)
  Receive Date: 20131119
  Receipt Date: 20131119
  Transmission Date: 20140711
  Serious: No
  Sender: FDA-Public Use
  Company Number: US-GILEAD-2007-0014564

PATIENT
  Sex: Female
  Weight: 58.97 kg

DRUGS (19)
  1. LETAIRIS [Suspect]
     Indication: PULMONARY ARTERIAL HYPERTENSION
     Route: 048
  2. CELEBREX [Concomitant]
     Route: 048
  3. TYLENOL [Concomitant]
     Dosage: PRN
     Route: 048
  4. CALCITRIOL [Concomitant]
     Route: 048
  5. NORVASC [Concomitant]
     Route: 048
  6. TRICOR [Concomitant]
     Route: 048
  7. AMOXICILLIN [Concomitant]
     Route: 048
  8. ACTONEL [Concomitant]
     Route: 048
  9. PREVACID [Concomitant]
     Route: 048
  10. ASPIRIN [Concomitant]
     Route: 048
  11. IRON [Concomitant]
     Route: 048
  12. PLAVIX [Concomitant]
     Route: 048
  13. GLUCOSAMINE [Concomitant]
     Route: 048
  14. VASOTEC [Concomitant]
     Route: 048
  15. CLONIDINE [Concomitant]
     Route: 048
  16. PROZAC [Concomitant]
     Route: 048
  17. DETROL [Concomitant]
     Route: 048
  18. TRIAMTERENE-HYDROCHLOROTHIAZIDE [Concomitant]
     Route: 048
  19. MOTILIUM [Concomitant]
     Route: 048

REACTIONS (1)
  - Oedema [Unknown]
